FAERS Safety Report 17007996 (Version 2)
Quarter: 2019Q4

REPORT INFORMATION
  Report Type: Spontaneous
  Country: US (occurrence: US)
  Receive Date: 20191108
  Receipt Date: 20191219
  Transmission Date: 20200122
  Serious: No
  Sender: FDA-Public Use
  Company Number: US-ASTRAZENECA-2019SF46196

PATIENT
  Age: 28002 Day
  Sex: Female
  Weight: 90.7 kg

DRUGS (1)
  1. SYMBICORT [Suspect]
     Active Substance: BUDESONIDE\FORMOTEROL FUMARATE DIHYDRATE
     Indication: ASTHMA
     Dosage: 80/4.5,TWO TIMES A DAY
     Route: 055
     Dates: start: 2015

REACTIONS (5)
  - Wrong technique in device usage process [Unknown]
  - Product dose omission [Unknown]
  - Intentional product misuse [Unknown]
  - Nasopharyngitis [Unknown]
  - Device failure [Unknown]

NARRATIVE: CASE EVENT DATE: 20191003
